FAERS Safety Report 19304738 (Version 1)
Quarter: 2021Q2

REPORT INFORMATION
  Report Type: Spontaneous
  Country: GR (occurrence: GR)
  Receive Date: 20210526
  Receipt Date: 20210526
  Transmission Date: 20210717
  Serious: Yes (Other)
  Sender: FDA-Public Use
  Company Number: GR-AMGEN-GRCSP2021077021

PATIENT
  Age: 57 Year
  Sex: Female

DRUGS (6)
  1. CARBOPLATIN. [Concomitant]
     Active Substance: CARBOPLATIN
     Dosage: UNK
  2. PLATINUM [Concomitant]
     Active Substance: PLATINUM
     Dosage: UNK
  3. ATEZOLIZUMAB. [Concomitant]
     Active Substance: ATEZOLIZUMAB
     Dosage: UNK
  4. XGEVA [Suspect]
     Active Substance: DENOSUMAB
     Indication: PRODUCT USED FOR UNKNOWN INDICATION
     Dosage: UNK
     Route: 065
  5. METHYLPREDNISOLONE. [Concomitant]
     Active Substance: METHYLPREDNISOLONE
     Dosage: UNK
  6. ETOPOSIDE. [Concomitant]
     Active Substance: ETOPOSIDE
     Dosage: UNK

REACTIONS (5)
  - Hydrocephalus [Recovered/Resolved]
  - Metastases to liver [Recovered/Resolved]
  - Neuropathy peripheral [Recovered/Resolved]
  - Retinopathy [Recovered/Resolved]
  - Optic neuritis [Recovered/Resolved]
